FAERS Safety Report 5692808-X (Version None)
Quarter: 2008Q2

REPORT INFORMATION
  Report Type: 
  Country: None (occurrence: None)
  Receive Date: 20080401
  Receipt Date: 20080315
  Transmission Date: 20081010
  Serious: Yes (Other)
  Sender: FDA-Public Use
  Company Number: ADE2008-0156

PATIENT
  Age: 46 Year
  Sex: Female

DRUGS (3)
  1. AMOXICILLIN TRIHYDRATE [Suspect]
     Indication: KIDNEY INFECTION
     Dosage: 500MG - TID - PO
     Route: 048
     Dates: start: 20080218, end: 20080222
  2. GABAPENTIN [Concomitant]
  3. KEPPRA [Concomitant]

REACTIONS (2)
  - EPILEPSY [None]
  - GRAND MAL CONVULSION [None]
